FAERS Safety Report 9467928 (Version 1)
Quarter: 2013Q3

REPORT INFORMATION
  Report Type: Spontaneous
  Country: BR (occurrence: BR)
  Receive Date: 20130821
  Receipt Date: 20130821
  Transmission Date: 20140515
  Serious: Yes (Other)
  Sender: FDA-Public Use
  Company Number: BR-PFIZER INC-2013240143

PATIENT
  Age: 34 Year
  Sex: Female
  Weight: 90 kg

DRUGS (2)
  1. LYRICA [Suspect]
     Indication: PAIN
     Dosage: TWO CAPSULES OF 75MG DAILY
     Route: 048
     Dates: start: 20130419
  2. LYRICA [Suspect]
     Indication: MUSCLE FATIGUE

REACTIONS (2)
  - Off label use [Not Recovered/Not Resolved]
  - Spinal disorder [Unknown]
